FAERS Safety Report 24652607 (Version 1)
Quarter: 2024Q4

REPORT INFORMATION
  Report Type: Spontaneous
  Country: US (occurrence: US)
  Receive Date: 20241122
  Receipt Date: 20241122
  Transmission Date: 20250114
  Serious: No
  Sender: ROCHE
  Company Number: US-ROCHE-10000137581

PATIENT

DRUGS (1)
  1. ACTEMRA [Suspect]
     Active Substance: TOCILIZUMAB
     Indication: Vasculitis
     Route: 065
     Dates: start: 2021

REACTIONS (3)
  - Aspartate aminotransferase increased [Unknown]
  - Off label use [Unknown]
  - Alanine aminotransferase increased [Unknown]
